FAERS Safety Report 25332511 (Version 4)
Quarter: 2025Q4

REPORT INFORMATION
  Report Type: Report from Study
  Country: None (occurrence: IL)
  Receive Date: 20250519
  Receipt Date: 20251118
  Transmission Date: 20260118
  Serious: Yes (Hospitalization)
  Sender: ALNYLAM PHARMACEUTICALS
  Company Number: IL-ALNYLAM PHARMACEUTICALS, INC.-ALN-2025-003278

PATIENT
  Age: 68 Year

DRUGS (1)
  1. AMVUTTRA [Suspect]
     Active Substance: VUTRISIRAN
     Indication: Amyloidosis
     Dosage: 25 MILLIGRAM, Q3M

REACTIONS (7)
  - Cardiac failure [Not Recovered/Not Resolved]
  - Fluid retention [Unknown]
  - Localised infection [Unknown]
  - Cataract operation [Unknown]
  - Intentional dose omission [Unknown]
  - Condition aggravated [Unknown]
  - Product dose omission issue [Unknown]
